FAERS Safety Report 15785576 (Version 3)
Quarter: 2019Q1

REPORT INFORMATION
  Report Type: Report from Study
  Country: GR (occurrence: GR)
  Receive Date: 20190103
  Receipt Date: 20190222
  Transmission Date: 20190417
  Serious: Yes (Other)
  Sender: FDA-Public Use
  Company Number: PHHO2018GR013616

PATIENT
  Age: 84 Year
  Sex: Male
  Weight: 108 kg

DRUGS (7)
  1. ENCALOR [Suspect]
     Active Substance: BICALUTAMIDE
     Indication: PROSTATIC ADENOMA
     Dosage: 50 MG, QD
     Route: 048
     Dates: start: 20160720, end: 20181227
  2. PRADAXA [Concomitant]
     Active Substance: DABIGATRAN ETEXILATE MESYLATE
     Indication: ATRIAL FIBRILLATION
     Dosage: 110 MG, BID
     Route: 048
     Dates: start: 20160628
  3. ZYLORIC [Suspect]
     Active Substance: ALLOPURINOL
     Indication: HYPERURICAEMIA
     Dosage: 100 MG, QD
     Route: 048
     Dates: start: 20150803, end: 20181227
  4. LANTUS [Concomitant]
     Active Substance: INSULIN GLARGINE
     Indication: DIABETES MELLITUS
     Dosage: 40 IU, QD
     Route: 058
     Dates: start: 20161005
  5. LASIX [Concomitant]
     Active Substance: FUROSEMIDE
     Indication: CARDIAC FAILURE
     Dosage: 40 MG, QD
     Route: 048
     Dates: start: 20160628
  6. LCZ696 [Suspect]
     Active Substance: SACUBITRIL\VALSARTAN
     Indication: CARDIAC FAILURE
     Dosage: 200 MG, BID
     Route: 065
     Dates: start: 20150729, end: 20181228
  7. LEPUR [Suspect]
     Active Substance: SIMVASTATIN
     Indication: DYSLIPIDAEMIA
     Dosage: 20 MG, QD
     Route: 048
     Dates: start: 20130713, end: 20181227

REACTIONS (3)
  - Jaundice [Recovered/Resolved with Sequelae]
  - Renal impairment [Recovering/Resolving]
  - Bile duct stenosis [Not Recovered/Not Resolved]

NARRATIVE: CASE EVENT DATE: 20181228
